FAERS Safety Report 6890079-X (Version None)
Quarter: 2010Q3

REPORT INFORMATION
  Report Type: 
  Country: None (occurrence: None)
  Receive Date: 20100730
  Receipt Date: 20080724
  Transmission Date: 20110219
  Serious: No
  Sender: FDA-Public Use
  Company Number: US-PFIZER INC-2008062024

PATIENT
  Sex: Male
  Weight: 72.727 kg

DRUGS (5)
  1. LIPITOR [Suspect]
     Indication: BLOOD CHOLESTEROL INCREASED
     Dates: start: 20080601
  2. ATENOLOL [Concomitant]
     Indication: HYPERTENSION
  3. ZOCOR [Concomitant]
  4. NORVASC [Concomitant]
     Indication: HYPERTENSION
  5. WARFARIN SODIUM [Concomitant]

REACTIONS (2)
  - BLOOD GLUCOSE INCREASED [None]
  - WEIGHT DECREASED [None]
